FAERS Safety Report 13671103 (Version 1)
Quarter: 2017Q2

REPORT INFORMATION
  Report Type: Spontaneous
  Country: US (occurrence: US)
  Receive Date: 20170620
  Receipt Date: 20170620
  Transmission Date: 20170830
  Serious: No
  Sender: FDA-Public Use
  Company Number: US-ROCHE-1359742

PATIENT
  Sex: Female

DRUGS (3)
  1. METOLAZONE. [Concomitant]
     Active Substance: METOLAZONE
  2. FUROSEMIDE. [Concomitant]
     Active Substance: FUROSEMIDE
  3. XELODA [Suspect]
     Active Substance: CAPECITABINE
     Indication: PANCREATIC CARCINOMA
     Route: 048
     Dates: start: 20140118

REACTIONS (4)
  - Constipation [Unknown]
  - Localised infection [Unknown]
  - Nausea [Unknown]
  - Oral mucosal blistering [Unknown]
